FAERS Safety Report 15535463 (Version 1)
Quarter: 2018Q4

REPORT INFORMATION
  Report Type: Spontaneous
  Country: US (occurrence: US)
  Receive Date: 20181022
  Receipt Date: 20181022
  Transmission Date: 20190205
  Serious: No
  Sender: FDA-Public Use
  Company Number: US-TEVA-2018-US-964152

PATIENT
  Sex: Female

DRUGS (1)
  1. ENOXAPARIN [Suspect]
     Active Substance: ENOXAPARIN
     Indication: COAGULOPATHY
     Dosage: DOSE STRENGTH:  40 MG/0.4 ML
     Route: 065
     Dates: start: 20180119

REACTIONS (5)
  - Maternal exposure during pregnancy [Unknown]
  - Limb discomfort [Unknown]
  - Dizziness [Unknown]
  - Live birth [Unknown]
  - Feeling abnormal [Unknown]

NARRATIVE: CASE EVENT DATE: 20180119
